FAERS Safety Report 9192032 (Version 1)
Quarter: 2013Q1

REPORT INFORMATION
  Report Type: Spontaneous
  Country: US (occurrence: None)
  Receive Date: 20130325
  Receipt Date: 20130325
  Transmission Date: 20140127
  Serious: Yes (Death, Hospitalization)
  Sender: FDA-Public Use
  Company Number: 2013/064

PATIENT
  Age: 36 Year
  Sex: Female

DRUGS (4)
  1. VALPROIC ACID [Suspect]
     Indication: SCHIZOAFFECTIVE DISORDER
     Route: 048
  2. PERPHENAZINE [Suspect]
     Indication: SCHIZOAFFECTIVE DISORDER
     Dosage: 4MG QAM, 5MG QPM + ORAL
  3. CYCLOBENZAPRINE [Concomitant]
  4. SERTRALINE [Concomitant]

REACTIONS (25)
  - Agitation [None]
  - Abnormal behaviour [None]
  - Somnolence [None]
  - Confusional state [None]
  - Brain scan abnormal [None]
  - Lung consolidation [None]
  - White blood cell count decreased [None]
  - Nuclear magnetic resonance imaging brain abnormal [None]
  - Aspiration [None]
  - Brain oedema [None]
  - Neuroleptic malignant syndrome [None]
  - Serotonin syndrome [None]
  - Intracranial pressure increased [None]
  - Hyperammonaemia [None]
  - Continuous haemodiafiltration [None]
  - Status epilepticus [None]
  - Brain herniation [None]
  - Brain injury [None]
  - Hepatomegaly [None]
  - Liver disorder [None]
  - Depressed level of consciousness [None]
  - Muscle rigidity [None]
  - Mydriasis [None]
  - Blood creatine phosphokinase increased [None]
  - Histology abnormal [None]
